FAERS Safety Report 20573947 (Version 10)
Quarter: 2024Q1

REPORT INFORMATION
  Report Type: Spontaneous
  Country: US (occurrence: US)
  Receive Date: 20220309
  Receipt Date: 20240111
  Transmission Date: 20240410
  Serious: Yes (Other)
  Sender: FDA-Public Use
  Company Number: US-PFIZER INC-2019416824

PATIENT
  Age: 83 Year
  Sex: Female

DRUGS (1)
  1. XELJANZ XR [Suspect]
     Active Substance: TOFACITINIB CITRATE
     Dosage: 11 MG

REACTIONS (8)
  - Cardiac failure [Unknown]
  - Heart valve incompetence [Unknown]
  - Transient ischaemic attack [Unknown]
  - Secretion discharge [Recovered/Resolved]
  - Arthritis [Unknown]
  - Pain [Recovering/Resolving]
  - Bone pain [Unknown]
  - Illness [Unknown]
